FAERS Safety Report 20418012 (Version 1)
Quarter: 2022Q1

REPORT INFORMATION
  Report Type: Report from Study
  Country: AU (occurrence: AU)
  Receive Date: 20220202
  Receipt Date: 20220202
  Transmission Date: 20220424
  Serious: Yes (Hospitalization)
  Sender: FDA-Public Use
  Company Number: AU-PFIZER INC-202200051590

PATIENT
  Age: 58 Year
  Sex: Female

DRUGS (14)
  1. IRINOTECAN HYDROCHLORIDE [Suspect]
     Active Substance: IRINOTECAN HYDROCHLORIDE
     Indication: Pancreatic carcinoma
     Dosage: 297 MG
     Route: 042
     Dates: start: 20211220
  2. OXALIPLATIN [Suspect]
     Active Substance: OXALIPLATIN
     Indication: Pancreatic carcinoma
     Dosage: 168 MG
     Route: 042
     Dates: start: 20211220
  3. FLUOROURACIL [Suspect]
     Active Substance: FLUOROURACIL
     Indication: Pancreatic carcinoma
     Dosage: 4752 MG
     Route: 042
     Dates: start: 20211220
  4. LEUCOVORIN [Suspect]
     Active Substance: LEUCOVORIN
     Indication: Pancreatic carcinoma
     Dosage: 792 MG
     Route: 042
     Dates: start: 20211220
  5. NALOXONE HYDROCHLORIDE\OXYCODONE HYDROCHLORIDE [Concomitant]
     Active Substance: NALOXONE HYDROCHLORIDE\OXYCODONE HYDROCHLORIDE
     Indication: Abdominal pain
     Dosage: 1 TABLET, 2 IN 1 D
     Route: 048
     Dates: start: 202111
  6. OXYCODONE HYDROCHLORIDE [Concomitant]
     Active Substance: OXYCODONE HYDROCHLORIDE
     Indication: Abdominal pain
     Dosage: 5 MG, 1 AS REQUIRED
     Route: 048
     Dates: start: 202111
  7. DEXAMETHASONE [Concomitant]
     Active Substance: DEXAMETHASONE
     Indication: Prophylaxis of nausea and vomiting
     Dosage: 8 MG, 1 IN 2 WK, GIVEN WITH CHEMOTHERAPY
     Route: 042
     Dates: start: 20211220
  8. DEXAMETHASONE [Concomitant]
     Active Substance: DEXAMETHASONE
     Dosage: 4 MG, INTERMITTENT, TAKEN FOR 2 DAYS POST CHEMOTHERAPY
     Route: 048
     Dates: start: 20211221
  9. METOCLOPRAMIDE [Concomitant]
     Active Substance: METOCLOPRAMIDE
     Indication: Nausea
     Dosage: 40 MG (10 MG, 4 IN 1 D)
     Route: 048
     Dates: start: 20211223
  10. METOCLOPRAMIDE [Concomitant]
     Active Substance: METOCLOPRAMIDE
     Indication: Vomiting
     Dosage: 20 MG, 1 ONCE
     Route: 042
     Dates: start: 20211223
  11. ONDANSETRON [Concomitant]
     Active Substance: ONDANSETRON
     Indication: Nausea
     Dosage: 8 MG, 1 ONCE
     Route: 042
     Dates: start: 20211223
  12. ONDANSETRON [Concomitant]
     Active Substance: ONDANSETRON
     Indication: Vomiting
  13. LIPEGFILGRASTIM [Concomitant]
     Active Substance: LIPEGFILGRASTIM
     Indication: Prophylaxis
     Dosage: 6 MG, 1 IN 2 WK
     Route: 058
     Dates: start: 20211223
  14. NETUPITANT\PALONOSETRON HYDROCHLORIDE [Concomitant]
     Active Substance: NETUPITANT\PALONOSETRON HYDROCHLORIDE
     Indication: Prophylaxis
     Dosage: [NETUPITANT 300 MG]/ [PALONOSETRON 0.5 MG], 1 IN 2 WK
     Route: 042
     Dates: start: 20211220

REACTIONS (2)
  - Device occlusion [Recovered/Resolved]
  - Sepsis [Recovered/Resolved]

NARRATIVE: CASE EVENT DATE: 20211228
